FAERS Safety Report 18607253 (Version 20)
Quarter: 2022Q1

REPORT INFORMATION
  Report Type: Report from Study
  Country: US (occurrence: None)
  Receive Date: 20201211
  Receipt Date: 20220208
  Transmission Date: 20220423
  Serious: Yes (Life-Threatening, Hospitalization)
  Sender: FDA-Public Use
  Company Number: US-EISAI MEDICAL RESEARCH-EC-2020-085151

PATIENT
  Age: 51 Year
  Sex: Female
  Weight: 92.2 kg

DRUGS (17)
  1. LENVATINIB [Suspect]
     Active Substance: LENVATINIB
     Indication: Colorectal cancer
     Route: 048
     Dates: start: 20201123, end: 20201207
  2. LENVATINIB [Suspect]
     Active Substance: LENVATINIB
     Dosage: STARTING DOSE AT 14 MG, FLUCTUATED DOSAGE
     Route: 048
     Dates: start: 20201214
  3. PEMBROLIZUMAB [Suspect]
     Active Substance: PEMBROLIZUMAB
     Indication: Colorectal cancer
     Route: 041
     Dates: start: 20201123, end: 20201123
  4. PEMBROLIZUMAB [Suspect]
     Active Substance: PEMBROLIZUMAB
     Route: 041
     Dates: start: 20201214
  5. ATIVAN [Concomitant]
     Active Substance: LORAZEPAM
     Dates: start: 20200914
  6. GABAPENTIN [Concomitant]
     Active Substance: GABAPENTIN
     Dates: start: 19950101
  7. ZOLPID [Concomitant]
     Dates: start: 20100101
  8. CITALOPRAM [Concomitant]
     Active Substance: CITALOPRAM HYDROBROMIDE
     Dates: start: 20050101, end: 20210530
  9. PANTOPRAZOLE [Concomitant]
     Active Substance: PANTOPRAZOLE
     Dates: start: 20180101
  10. HYDROXYZINE HYDROCHLORIDE [Concomitant]
     Active Substance: HYDROXYZINE HYDROCHLORIDE
     Dates: start: 20160206
  11. TIZANIDINE HYDROCHLORIDE [Concomitant]
     Active Substance: TIZANIDINE HYDROCHLORIDE
     Dates: start: 20160312
  12. METHOCARBAMOL [Concomitant]
     Active Substance: METHOCARBAMOL
     Dates: start: 20200519
  13. OXYCONTIN [Concomitant]
     Active Substance: OXYCODONE HYDROCHLORIDE
     Dates: start: 20201005
  14. MELATONIN [Concomitant]
     Active Substance: MELATONIN
     Dates: start: 20200101
  15. MECLIZINE [Concomitant]
     Active Substance: MECLIZINE HYDROCHLORIDE
     Dates: start: 20160331
  16. LOMOTIL [Concomitant]
     Active Substance: ATROPINE SULFATE\DIPHENOXYLATE HYDROCHLORIDE
     Dates: start: 20201124, end: 20201126
  17. TYLENOL [Concomitant]
     Active Substance: ACETAMINOPHEN
     Dates: start: 20200701

REACTIONS (1)
  - Hypertensive urgency [Recovered/Resolved]

NARRATIVE: CASE EVENT DATE: 20201207
